FAERS Safety Report 6386583-3 (Version None)
Quarter: 2009Q4

REPORT INFORMATION
  Report Type: 
  Country: None (occurrence: None)
  Receive Date: 20091002
  Receipt Date: 20090311
  Transmission Date: 20100525
  Serious: No
  Sender: FDA-Public Use
  Company Number: US-ASTRAZENECA-2009UW06477

PATIENT
  Sex: Female

DRUGS (4)
  1. ARIMIDEX [Suspect]
     Indication: BREAST CANCER
     Route: 048
     Dates: start: 20090201
  2. LEXAPRO [Concomitant]
  3. CLONAZEPAM [Concomitant]
  4. ATENOLOL [Concomitant]

REACTIONS (2)
  - ASTHENIA [None]
  - FEELING COLD [None]
